FAERS Safety Report 8230275-2 (Version None)
Quarter: 2012Q1

REPORT INFORMATION
  Report Type: 
  Country: None (occurrence: None)
  Receive Date: 20120323
  Receipt Date: 20120313
  Transmission Date: 20120608
  Serious: Yes (Other)
  Sender: FDA-Public Use
  Company Number: US-JNJFOC-20120210639

PATIENT
  Sex: Male

DRUGS (7)
  1. METFORMIN HCL [Concomitant]
     Indication: TYPE 2 DIABETES MELLITUS
  2. LOVASTATIN [Concomitant]
     Indication: HYPERLIPIDAEMIA
  3. TRIAMCINOLONE [Concomitant]
     Indication: PSORIASIS
     Dates: start: 20090101
  4. STELARA [Suspect]
     Indication: PSORIASIS
     Route: 058
     Dates: start: 20100105, end: 20110415
  5. ALLOPURINOL [Concomitant]
     Indication: HYPERURICAEMIA
  6. LISINOPRIL AND HYDROCHLOROTHIAZIDE [Concomitant]
     Indication: HYPERTENSION
  7. STELARA [Suspect]
     Route: 058
     Dates: start: 20110415

REACTIONS (3)
  - INCORRECT DRUG ADMINISTRATION DURATION [None]
  - THROMBOCYTOPENIA [None]
  - HEPATITIS CHRONIC ACTIVE [None]
